FAERS Safety Report 24898232 (Version 1)
Quarter: 2025Q1

REPORT INFORMATION
  Report Type: Spontaneous
  Country: CN (occurrence: CN)
  Receive Date: 20250129
  Receipt Date: 20250129
  Transmission Date: 20250409
  Serious: Yes (Other)
  Sender: ROCHE
  Company Number: CN-ROCHE-10000193249

PATIENT
  Age: 45 Year
  Sex: Female

DRUGS (6)
  1. BEVACIZUMAB [Suspect]
     Active Substance: BEVACIZUMAB
     Indication: Non-small cell lung cancer
     Route: 065
  2. PEMETREXED [Suspect]
     Active Substance: PEMETREXED
     Indication: Non-small cell lung cancer
     Route: 065
  3. CARBOPLATIN [Suspect]
     Active Substance: CARBOPLATIN
     Indication: Non-small cell lung cancer
     Route: 065
  4. AFATINIB [Concomitant]
     Active Substance: AFATINIB
  5. POZIOTINIB [Concomitant]
     Active Substance: POZIOTINIB
  6. CATEQUENTINIB [Concomitant]
     Active Substance: CATEQUENTINIB

REACTIONS (1)
  - Disease progression [Unknown]
